FAERS Safety Report 8318917-4 (Version None)
Quarter: 2012Q2

REPORT INFORMATION
  Report Type: 
  Country: None (occurrence: None)
  Receive Date: 20120427
  Receipt Date: 20120418
  Transmission Date: 20120825
  Serious: Yes (Other)
  Sender: FDA-Public Use
  Company Number: BR-ASTRAZENECA-2011SE25961

PATIENT
  Age: 72 Year
  Sex: Female
  Weight: 57 kg

DRUGS (13)
  1. NEOSALDINA [Concomitant]
     Indication: HEADACHE
     Route: 048
  2. ATACAND HCT [Suspect]
     Dosage: 16+5 MG ONCE DAILY
     Route: 048
     Dates: start: 20110401
  3. ATACAND HCT [Suspect]
     Indication: HYPERTENSION
     Dosage: 16+2.5 MG DAILY
     Route: 048
     Dates: start: 20110301, end: 20110401
  4. OMEPRAZOLE [Concomitant]
     Indication: GASTRITIS
     Route: 048
     Dates: start: 20050101
  5. CENTELLA ASIATIC [Concomitant]
     Indication: HEADACHE
     Dosage: THREE TIMES A DAY
     Route: 048
     Dates: start: 20110301
  6. SIMVASTATIN [Suspect]
     Indication: HYPERCHOLESTEROLAEMIA
     Dosage: ONCE DAILY
     Route: 048
     Dates: start: 20080101, end: 20110301
  7. OMEPRAZOLE [Concomitant]
     Indication: ULCER
     Route: 048
     Dates: start: 20050101
  8. ATACAND [Suspect]
     Indication: HYPERTENSION
     Route: 048
     Dates: start: 20110101, end: 20110301
  9. CENTELLA ASIATIC [Concomitant]
     Indication: MEMORY IMPAIRMENT
     Dosage: THREE TIMES A DAY
     Route: 048
     Dates: start: 20110301
  10. DOLAMIM FLEX [Concomitant]
     Indication: ARTHRALGIA
     Route: 048
     Dates: start: 20100101
  11. ACETAMINOPHEN [Concomitant]
     Indication: HEADACHE
     Dosage: EVERY OTHER DAY
     Route: 048
     Dates: start: 20090101
  12. GINKGO BILOBA [Concomitant]
     Indication: MEMORY IMPAIRMENT
     Dosage: THREE TIMES A DAY
     Route: 048
     Dates: start: 20110301
  13. GINKGO BILOBA [Concomitant]
     Indication: HEADACHE
     Dosage: THREE TIMES A DAY
     Route: 048
     Dates: start: 20110301

REACTIONS (9)
  - CHOLECYSTITIS [None]
  - INSOMNIA [None]
  - BLOOD PRESSURE INADEQUATELY CONTROLLED [None]
  - ARTHRALGIA [None]
  - CHOLELITHIASIS [None]
  - DRUG INEFFECTIVE [None]
  - ANXIETY [None]
  - HYPERCHOLESTEROLAEMIA [None]
  - HYPOTENSION [None]
